FAERS Safety Report 6608072-0 (Version None)
Quarter: 2010Q1

REPORT INFORMATION
  Report Type: 
  Country: None (occurrence: None)
  Receive Date: 20100301
  Receipt Date: 20100217
  Transmission Date: 20100710
  Serious: Yes (Death, Hospitalization, Other)
  Sender: FDA-Public Use
  Company Number: NZ-BRISTOL-MYERS SQUIBB COMPANY-14913909

PATIENT
  Age: 74 Year
  Sex: Male

DRUGS (2)
  1. SPRYCEL [Suspect]
     Indication: CHRONIC MYELOID LEUKAEMIA
     Dates: end: 20091218
  2. FUROSEMIDE [Suspect]

REACTIONS (5)
  - DEATH [None]
  - FLUID RETENTION [None]
  - HYPERPLASIA [None]
  - LOWER RESPIRATORY TRACT INFECTION [None]
  - RENAL FAILURE ACUTE [None]
